FAERS Safety Report 8990601 (Version 1)
Quarter: 2012Q4

REPORT INFORMATION
  Report Type: 
  Country: US (occurrence: US)
  Receive Date: 20121228
  Receipt Date: 20121228
  Transmission Date: 20130627
  Serious: Yes (Other)
  Sender: FDA-Public Use
  Company Number: US-ELI_LILLY_AND_COMPANY-US201212006869

PATIENT
  Sex: Male
  Weight: 81.63 kg

DRUGS (10)
  1. BYETTA [Suspect]
     Indication: TYPE 2 DIABETES MELLITUS
     Dosage: 10 ug, bid
     Route: 058
     Dates: start: 2005
  2. GLIMEPIRIDE [Concomitant]
     Indication: TYPE 2 DIABETES MELLITUS
     Dosage: 4 mg, bid
     Route: 048
  3. RAMIPRIL [Concomitant]
     Dosage: 5 mg, bid
  4. HYDROCHLOROTHIAZIDE [Concomitant]
     Dosage: 12.5 mg, qd
     Route: 048
  5. METOPROLOL [Concomitant]
     Dosage: 1 DF, qd
     Route: 048
  6. FENOFIBRATE [Concomitant]
     Dosage: 160 mg, qd
     Route: 048
  7. AMLODIPINE [Concomitant]
     Dosage: 5 mg, qd
     Route: 048
  8. CRESTOR [Concomitant]
     Dosage: 10 mg, qd
     Route: 048
  9. ASPIRIN [Concomitant]
     Dosage: 325 mg, qd
  10. PEPCID [Concomitant]
     Dosage: 20 mg, bid
     Route: 048

REACTIONS (3)
  - Colon cancer [Recovered/Resolved]
  - Anaemia [Unknown]
  - Blood count abnormal [Unknown]
